FAERS Safety Report 10051165 (Version 2)
Quarter: 2014Q2

REPORT INFORMATION
  Report Type: Report from Study
  Country: JP (occurrence: JP)
  Receive Date: 20140401
  Receipt Date: 20140409
  Transmission Date: 20141212
  Serious: Yes (Hospitalization)
  Sender: FDA-Public Use
  Company Number: JP-NAPPMUNDI-GBR-2014-0017731

PATIENT
  Age: 57 Year
  Sex: Male

DRUGS (10)
  1. OXYCODONE HCL PR TABLET [Suspect]
     Indication: BACK PAIN
     Dosage: 40 MG, DAILY
     Route: 048
     Dates: start: 20140221, end: 20140318
  2. OXYCODONE HCL PR TABLET [Suspect]
     Dosage: 40 MG, DAILY
     Route: 048
     Dates: start: 20140213, end: 20140220
  3. OXYCODONE HCL PR TABLET [Suspect]
     Dosage: 20 MG, DAILY
     Route: 048
     Dates: start: 20140206, end: 20140213
  4. OXYCODONE HCL PR TABLET [Suspect]
     Dosage: 10 MG, DAILY
     Route: 048
     Dates: start: 20140121, end: 20140206
  5. MAGNESIUM OXIDE [Concomitant]
     Indication: CONSTIPATION PROPHYLAXIS
     Dosage: UNK
     Route: 048
     Dates: start: 20140121, end: 20140318
  6. PURSENNID                          /00142207/ [Concomitant]
     Indication: CONSTIPATION
     Dosage: 24 MG, DAILY
     Route: 048
     Dates: start: 20140213, end: 20140318
  7. FAMOTIDINE [Concomitant]
     Indication: GASTRITIS
  8. IRSOGLADINE MALEATE [Concomitant]
     Indication: GASTRITIS
  9. BROTIZOLAM [Concomitant]
     Indication: IRRITABILITY
  10. BROTIZOLAM [Concomitant]
     Indication: INSOMNIA

REACTIONS (1)
  - Enterocolitis [Recovering/Resolving]
